FAERS Safety Report 22271204 (Version 1)
Quarter: 2023Q2

REPORT INFORMATION
  Report Type: Spontaneous
  Country: US (occurrence: US)
  Receive Date: 20230501
  Receipt Date: 20230501
  Transmission Date: 20230722
  Serious: Yes (Hospitalization, Other)
  Sender: FDA-Public Use
  Company Number: US-MACLEODS PHARMACEUTICALS US LTD-MAC2023041020

PATIENT

DRUGS (3)
  1. AMLODIPINE [Suspect]
     Active Substance: AMLODIPINE BESYLATE
     Indication: Hypertension
     Dosage: UNK
     Route: 065
     Dates: end: 2022
  2. XTANDI [Suspect]
     Active Substance: ENZALUTAMIDE
     Indication: Prostate cancer
     Dosage: 4 DOSAGE FORM, QD (160 MG DAILY)
     Route: 048
  3. XTANDI [Suspect]
     Active Substance: ENZALUTAMIDE
     Dosage: 2 DOSAGE FORM, QD (80 MG TWICE DAILY)
     Route: 048
     Dates: start: 202301

REACTIONS (8)
  - Pneumonia [Recovered/Resolved]
  - Renal failure [Not Recovered/Not Resolved]
  - End stage renal disease [Not Recovered/Not Resolved]
  - Blood pressure increased [Not Recovered/Not Resolved]
  - Condition aggravated [Not Recovered/Not Resolved]
  - Swollen tongue [Recovered/Resolved]
  - Inappropriate schedule of product administration [Unknown]
  - Inability to afford medication [Unknown]

NARRATIVE: CASE EVENT DATE: 20220101
